FAERS Safety Report 10714819 (Version 2)
Quarter: 2015Q1

REPORT INFORMATION
  Report Type: Spontaneous
  Country: JP (occurrence: JP)
  Receive Date: 20150115
  Receipt Date: 20150127
  Transmission Date: 20150721
  Serious: Yes (Other)
  Sender: FDA-Public Use
  Company Number: JP-GLAXOSMITHKLINE-JP2015JPN003552

PATIENT
  Age: 11 Year
  Sex: Female
  Weight: 40 kg

DRUGS (4)
  1. RELENZA [Suspect]
     Active Substance: ZANAMIVIR
     Indication: INFLUENZA
     Dosage: 10 MG, BID
     Route: 055
     Dates: start: 20150107, end: 20150112
  2. MEDICON [Concomitant]
     Active Substance: DEXTROMETHORPHAN HYDROBROMIDE
     Indication: ANTITUSSIVE THERAPY
     Dosage: 15 MG, BID
     Dates: start: 20150107
  3. EPINASTINE [Concomitant]
     Active Substance: EPINASTINE
     Indication: RHINITIS
     Dosage: UNK
  4. CALONAL [Concomitant]
     Active Substance: ACETAMINOPHEN
     Dosage: UNK

REACTIONS (1)
  - Hypothermia [Recovering/Resolving]

NARRATIVE: CASE EVENT DATE: 20150108
